FAERS Safety Report 4324767-6 (Version None)
Quarter: 2004Q1

REPORT INFORMATION
  Report Type: 
  Country: None (occurrence: None)
  Receive Date: 20040326
  Receipt Date: 20030729
  Transmission Date: 20041129
  Serious: Yes (Hospitalization)
  Sender: FDA-Public Use
  Company Number: US-GLAXOSMITHKLINE-A0419671A

PATIENT
  Age: 65 Year
  Sex: Female

DRUGS (7)
  1. ADVAIR [Suspect]
     Indication: BRONCHITIS
     Dosage: 1PUFF TWICE PER DAY
     Route: 055
     Dates: start: 20030617, end: 20030706
  2. PREDNISOLONE [Suspect]
     Indication: DYSPNOEA
     Route: 065
     Dates: start: 20030101, end: 20030101
  3. CARDIZEM [Concomitant]
     Route: 048
  4. ENALAPRIL MALEATE [Concomitant]
     Route: 048
  5. GLUCOPHAGE [Concomitant]
     Route: 048
  6. GLYBURIDE [Concomitant]
     Route: 048
  7. THYROID MEDICATION [Concomitant]
     Route: 048

REACTIONS (3)
  - CHOLELITHIASIS [None]
  - PAIN [None]
  - PANCREATITIS ACUTE [None]
